FAERS Safety Report 20309911 (Version 7)
Quarter: 2022Q1

REPORT INFORMATION
  Report Type: Spontaneous
  Country: SE (occurrence: SE)
  Receive Date: 20220107
  Receipt Date: 20220222
  Transmission Date: 20220423
  Serious: Yes (Other)
  Sender: FDA-Public Use
  Company Number: SE-SA-SAC20220103001257

PATIENT
  Sex: Female

DRUGS (5)
  1. KEVZARA [Suspect]
     Active Substance: SARILUMAB
     Indication: Rheumatoid arthritis
     Dosage: 200 MG, QOW
     Dates: start: 20211021
  2. CORTISONE [Concomitant]
     Active Substance: CORTISONE
     Indication: Rheumatoid arthritis
     Dosage: UNK
     Dates: start: 2013
  3. XARELTO [Concomitant]
     Active Substance: RIVAROXABAN
     Indication: Thrombosis
     Dosage: UNK
  4. EDOXABAN TOSYLATE [Concomitant]
     Active Substance: EDOXABAN TOSYLATE
     Indication: Thrombosis
     Dosage: UNK
     Dates: start: 202110
  5. PREDNISOLONE [Concomitant]
     Active Substance: PREDNISOLONE
     Indication: Arteritis
     Dosage: UNK
     Dates: start: 2013

REACTIONS (5)
  - Rheumatoid arthritis [Unknown]
  - Illness [Recovering/Resolving]
  - Pain [Recovered/Resolved]
  - Muscle rigidity [Unknown]
  - Drug ineffective [Unknown]
